FAERS Safety Report 9726215 (Version 1)
Quarter: 2013Q4

REPORT INFORMATION
  Report Type: Spontaneous
  Country: US (occurrence: None)
  Receive Date: 20131202
  Receipt Date: 20131202
  Transmission Date: 20140711
  Serious: Yes (Hospitalization)
  Sender: FDA-Public Use
  Company Number: None

PATIENT
  Age: 2 Year
  Sex: Female
  Weight: 14.4 kg

DRUGS (7)
  1. PEG-L- ASPARAGINASE [Suspect]
     Dates: end: 20130910
  2. VINCRISTINE SULFATE [Suspect]
     Dates: end: 20130917
  3. HYDROCORTISONE [Suspect]
     Dates: end: 20130820
  4. MERCAPTOPURINE [Suspect]
     Dates: end: 20130909
  5. METHOTREXATE [Suspect]
     Dates: end: 20130820
  6. CYTARABINE [Suspect]
     Dates: end: 20130908
  7. CYCLOPHOSPHAMIDE [Suspect]
     Dates: end: 20130827

REACTIONS (1)
  - Vomiting [None]
